FAERS Safety Report 10169406 (Version 1)
Quarter: 2014Q2

REPORT INFORMATION
  Report Type: Spontaneous
  Country: US (occurrence: US)
  Receive Date: 20140513
  Receipt Date: 20140513
  Transmission Date: 20141212
  Serious: Yes (Other)
  Sender: FDA-Public Use
  Company Number: US-PFIZER INC-2014129133

PATIENT
  Sex: Male

DRUGS (4)
  1. MORPHINE SULFATE [Suspect]
     Indication: PAIN
     Dosage: UNK
     Route: 065
  2. DILAUDID [Suspect]
     Indication: PAIN
     Dosage: UNK
     Route: 065
  3. OXYCONTIN [Suspect]
     Indication: PAIN
     Dosage: UNK
     Route: 065
  4. VALIUM [Concomitant]
     Dosage: UNK

REACTIONS (1)
  - Drug dependence [Unknown]
